FAERS Safety Report 6950109-3 (Version None)
Quarter: 2010Q3

REPORT INFORMATION
  Report Type: 
  Country: None (occurrence: None)
  Receive Date: 20100828
  Receipt Date: 20100209
  Transmission Date: 20110219
  Serious: No
  Sender: FDA-Public Use
  Company Number: US-ABBOTT-10P-163-0619318-00

PATIENT
  Sex: Female
  Weight: 72.64 kg

DRUGS (1)
  1. NIASPAN [Suspect]
     Indication: PRODUCT USED FOR UNKNOWN INDICATION
     Dosage: NIGHTLY
     Route: 048
     Dates: start: 20080701, end: 20090701

REACTIONS (3)
  - FEELING HOT [None]
  - FLUSHING [None]
  - SENSORY DISTURBANCE [None]
